FAERS Safety Report 24206679 (Version 1)
Quarter: 2024Q3

REPORT INFORMATION
  Report Type: Spontaneous
  Country: IT (occurrence: IT)
  Receive Date: 20240813
  Receipt Date: 20240813
  Transmission Date: 20241017
  Serious: No
  Sender: JAZZ
  Company Number: IT-JAZZ PHARMACEUTICALS-2023-IT-024339

PATIENT
  Sex: Male
  Weight: 12.7 kg

DRUGS (1)
  1. VYXEOS [Suspect]
     Active Substance: CYTARABINE\DAUNORUBICIN
     Indication: Product used for unknown indication
     Dosage: 73 INTERNATIONAL UNIT

REACTIONS (1)
  - Off label use [Unknown]
